FAERS Safety Report 18476551 (Version 2)
Quarter: 2021Q2

REPORT INFORMATION
  Report Type: Spontaneous
  Country: CA (occurrence: CA)
  Receive Date: 20201106
  Receipt Date: 20210616
  Transmission Date: 20210717
  Serious: Yes (Death, Hospitalization, Other)
  Sender: FDA-Public Use
  Company Number: CA-BAXTER-2020BAX022766

PATIENT
  Age: 69 Year
  Sex: Male

DRUGS (7)
  1. EXTRANEAL [Suspect]
     Active Substance: CALCIUM CHLORIDE\ICODEXTRIN\MAGNESIUM CHLORIDE\SODIUM CHLORIDE\SODIUM LACTATE
     Indication: PERITONEAL DIALYSIS
     Dosage: 2500 ML AT NIGHT AND 2000 ML DURING THE DAY, STOPPED
     Route: 033
     Dates: end: 202101
  2. NITROGLYCERIN. [Concomitant]
     Active Substance: NITROGLYCERIN
     Indication: DYSPNOEA
     Route: 065
  3. DIANEAL LOW CALCIUM PERITONEAL DIALYSIS SOLUTION WITH DEXTROSE [Suspect]
     Active Substance: CALCIUM CHLORIDE\DEXTROSE\MAGNESIUM CHLORIDE\SODIUM CHLORIDE\SODIUM LACTATE
     Dosage: ONE BAG OF 5000ML AND ONE BAG OF DIANEAL 1.5% 3000ML, DOSE INCREASED
     Route: 033
     Dates: start: 2021
  4. DIANEAL W/ DEXTROSE 2.5% [Suspect]
     Active Substance: CALCIUM CHLORIDE\DEXTROSE\MAGNESIUM CHLORIDE\SODIUM CHLORIDE\SODIUM LACTATE
     Indication: PERITONEAL DIALYSIS
     Dosage: 3 BAGS DAILY  (DIANEAL PD4 2.5% 3L SYSII X 2 BAGS DAILY AND DIANEAL PD4 2.5% 5L SYSII X 1 BAG DAILY)
     Route: 033
     Dates: end: 202101
  5. EXTRANEAL [Suspect]
     Active Substance: CALCIUM CHLORIDE\ICODEXTRIN\MAGNESIUM CHLORIDE\SODIUM CHLORIDE\SODIUM LACTATE
     Dosage: 2500 ML IN THE AFTERNOON AND ONE BAG 2000ML IN THE EVENING, RE?INTRODUCED
     Route: 033
     Dates: start: 2021
  6. DIANEAL LOW CALCIUM PERITONEAL DIALYSIS SOLUTION WITH DEXTROSE [Suspect]
     Active Substance: CALCIUM CHLORIDE\DEXTROSE\MAGNESIUM CHLORIDE\SODIUM CHLORIDE\SODIUM LACTATE
     Indication: PERITONEAL DIALYSIS
     Dosage: 2 BAGS OF 3LITER, STOPPED
     Route: 033
     Dates: end: 202101
  7. DIANEAL W/ DEXTROSE 2.5% [Suspect]
     Active Substance: CALCIUM CHLORIDE\DEXTROSE\MAGNESIUM CHLORIDE\SODIUM CHLORIDE\SODIUM LACTATE
     Dosage: 2 BAGS
     Route: 033
     Dates: end: 202101

REACTIONS (12)
  - Cardiac arrest [Fatal]
  - Atrioventricular block [Unknown]
  - Cardiac failure [Fatal]
  - Condition aggravated [Fatal]
  - Peritoneal dialysate leakage [Not Recovered/Not Resolved]
  - Peripheral swelling [Recovered/Resolved]
  - Intestinal obstruction [Unknown]
  - Chronic kidney disease [Fatal]
  - SARS-CoV-2 test positive [Recovered/Resolved]
  - Pneumonia [Recovered/Resolved]
  - Peritoneal dialysate leakage [Recovered/Resolved]
  - Abdominal hernia obstructive [Unknown]

NARRATIVE: CASE EVENT DATE: 20200926
